FAERS Safety Report 6395424-X (Version None)
Quarter: 2009Q4

REPORT INFORMATION
  Report Type: 
  Country: None (occurrence: None)
  Receive Date: 20091009
  Receipt Date: 20091005
  Transmission Date: 20100525
  Serious: Yes (Other)
  Sender: FDA-Public Use
  Company Number: JP-PFIZER INC-2009257308

PATIENT
  Age: 28 Year

DRUGS (4)
  1. AZULFIDINE [Suspect]
     Indication: RHEUMATOID ARTHRITIS
     Dosage: 500 MG, 2X/DAY
     Route: 048
     Dates: start: 20070221, end: 20081217
  2. RHEUMATREX [Suspect]
     Indication: RHEUMATOID ARTHRITIS
     Dosage: 12MG WEEKLY
     Route: 048
     Dates: start: 20070522
  3. LOXONIN [Concomitant]
     Dosage: UNK
     Route: 048
     Dates: start: 20070221
  4. FAMOTIDINE [Concomitant]
     Dosage: UNK
     Route: 048
     Dates: start: 20070221

REACTIONS (1)
  - PNEUMONIA CRYPTOCOCCAL [None]
